FAERS Safety Report 12130250 (Version 1)
Quarter: 2016Q1

REPORT INFORMATION
  Report Type: Other
  Country: US (occurrence: US)
  Receive Date: 20160229
  Receipt Date: 20160229
  Transmission Date: 20160526
  Serious: No
  Sender: FDA-Public Use
  Company Number: US-ACORDA-ACO_23586_2010

PATIENT
  Age: 65 Year
  Sex: Female
  Weight: 55 kg

DRUGS (7)
  1. RALOXIFENE. [Concomitant]
     Active Substance: RALOXIFENE
     Indication: BONE DISORDER
     Dosage: 60 MG, QD
     Dates: start: 1998
  2. AVONEX [Concomitant]
     Active Substance: INTERFERON BETA-1A
     Indication: MULTIPLE SCLEROSIS
     Dosage: UNK
     Dates: start: 1997
  3. TAMSULOSIN [Concomitant]
     Active Substance: TAMSULOSIN
     Indication: MULTIPLE SCLEROSIS
     Dosage: 0.4 MG, QD
     Dates: start: 1998
  4. AMPYRA [Suspect]
     Active Substance: DALFAMPRIDINE
     Indication: MULTIPLE SCLEROSIS
     Dosage: 10 MG, BID
     Route: 048
     Dates: start: 20100617
  5. AMPYRA [Suspect]
     Active Substance: DALFAMPRIDINE
     Indication: GAIT DISTURBANCE
     Dosage: 10 MG, Q 12 HRS
     Route: 065
     Dates: start: 20150527, end: 20150620
  6. RALOXIFENE. [Concomitant]
     Active Substance: RALOXIFENE
     Indication: BREAST DISORDER
  7. DETROL [Interacting]
     Active Substance: TOLTERODINE TARTRATE
     Indication: HYPERTONIC BLADDER
     Dosage: 4 MG, QD
     Route: 065
     Dates: start: 1998

REACTIONS (22)
  - Inhibitory drug interaction [Unknown]
  - Headache [Not Recovered/Not Resolved]
  - Insomnia [Not Recovered/Not Resolved]
  - Palpitations [Recovering/Resolving]
  - Pain [Not Recovered/Not Resolved]
  - Asthenia [Unknown]
  - Constipation [Not Recovered/Not Resolved]
  - Chest discomfort [Recovering/Resolving]
  - Muscle spasms [Recovering/Resolving]
  - Eye disorder [Not Recovered/Not Resolved]
  - Disturbance in attention [Not Recovered/Not Resolved]
  - Balance disorder [Not Recovered/Not Resolved]
  - Dyspnoea [Recovering/Resolving]
  - Cataract [Unknown]
  - Burning sensation [Not Recovered/Not Resolved]
  - Dizziness [Not Recovered/Not Resolved]
  - Nausea [Not Recovered/Not Resolved]
  - Osteoporosis [Unknown]
  - Knee arthroplasty [Unknown]
  - Therapy cessation [Unknown]
  - Pruritus [Unknown]
  - Micturition urgency [Unknown]

NARRATIVE: CASE EVENT DATE: 20100618
